FAERS Safety Report 17522165 (Version 1)
Quarter: 2020Q1

REPORT INFORMATION
  Report Type: Spontaneous
  Country: CN (occurrence: CN)
  Receive Date: 20200310
  Receipt Date: 20200310
  Transmission Date: 20200409
  Serious: Yes (Hospitalization)
  Sender: FDA-Public Use
  Company Number: CN-PFIZER INC-2020102396

PATIENT
  Age: 45 Year
  Sex: Female
  Weight: 56 kg

DRUGS (2)
  1. JIA PU LE [Concomitant]
     Indication: DEPRESSION
     Dosage: 1 MG, 2X/DAY
     Route: 048
     Dates: start: 20190917, end: 20200211
  2. ZOLOFT [Suspect]
     Active Substance: SERTRALINE HYDROCHLORIDE
     Indication: DEPRESSION
     Dosage: 50.000 MG, 2X/DAY
     Route: 048
     Dates: start: 20190917, end: 20200211

REACTIONS (3)
  - Chronic gastritis [Recovered/Resolved]
  - Abdominal pain [Recovered/Resolved]
  - Nausea [Recovered/Resolved]

NARRATIVE: CASE EVENT DATE: 20200211
